FAERS Safety Report 19103375 (Version 4)
Quarter: 2021Q3

REPORT INFORMATION
  Report Type: Report from Study
  Country: US (occurrence: US)
  Receive Date: 20210407
  Receipt Date: 20210810
  Transmission Date: 20211014
  Serious: Yes (Hospitalization, Other)
  Sender: FDA-Public Use
  Company Number: US-ROCHE-2799365

PATIENT
  Age: 79 Year
  Sex: Female
  Weight: 39.7 kg

DRUGS (11)
  1. IMODIUM [Concomitant]
     Active Substance: LOPERAMIDE HYDROCHLORIDE
  2. CIPROFLOXACIN. [Concomitant]
     Active Substance: CIPROFLOXACIN
  3. 5?FLUOROURACIL [Suspect]
     Active Substance: FLUOROURACIL
     Indication: ADENOCARCINOMA OF COLON
     Dosage: ON DAY 1 FOLLOWED BY 2400MG/M2 IV OVER 46 HOURS DAYS 1?3?DATE OF LAST DOSE RECEIVED: 05/FEB/2020 (35
     Route: 040
     Dates: start: 20200108
  4. ATEZOLIZUMAB. [Suspect]
     Active Substance: ATEZOLIZUMAB
     Indication: ADENOCARCINOMA OF COLON
     Dosage: DATE OF LAST DOSE RECEIVED: 05/FEB/2020
     Route: 041
     Dates: start: 20200108
  5. FUROSEMIDE. [Concomitant]
     Active Substance: FUROSEMIDE
  6. OXALIPLATIN. [Suspect]
     Active Substance: OXALIPLATIN
     Indication: ADENOCARCINOMA OF COLON
     Dosage: OVER 2 HOURS ON DAY 1?DATE OF LAST DOSE RECEIVED: 05/FEB/2020 (82.55 MG)
     Route: 042
     Dates: start: 20200108
  7. DIPHENOXYLATE/ATROPINE [Concomitant]
     Active Substance: ATROPINE\DIPHENOXYLATE
  8. NADOLOL. [Concomitant]
     Active Substance: NADOLOL
  9. PREDNISONE. [Concomitant]
     Active Substance: PREDNISONE
  10. LEUCOVORIN CALCIUM. [Suspect]
     Active Substance: LEUCOVORIN CALCIUM
     Indication: ADENOCARCINOMA OF COLON
     Dosage: OVER 2 HOURS ON DAY 1?DATE OF LAST DOSE RECEIVED: 05/FEB/2020 (508 MG)
     Route: 042
     Dates: start: 20200108
  11. BACTRIM [Concomitant]
     Active Substance: SULFAMETHOXAZOLE\TRIMETHOPRIM

REACTIONS (3)
  - Gastroenteritis viral [Recovered/Resolved]
  - Colitis [Unknown]
  - Urinary tract infection [Unknown]

NARRATIVE: CASE EVENT DATE: 20200219
